FAERS Safety Report 10809347 (Version 1)
Quarter: 2015Q1

REPORT INFORMATION
  Report Type: Spontaneous
  Country: US (occurrence: None)
  Receive Date: 20150213
  Receipt Date: 20150213
  Transmission Date: 20150721
  Serious: Yes (Hospitalization, Disabling)
  Sender: FDA-Public Use
  Company Number: None

PATIENT
  Age: 46 Year
  Sex: Female
  Weight: 82.1 kg

DRUGS (9)
  1. CYMBALTA [Suspect]
     Active Substance: DULOXETINE HYDROCHLORIDE
     Indication: PAIN
     Route: 048
     Dates: start: 201301, end: 20141120
  2. NORCO 10-325 [Concomitant]
  3. ASPIRIN. [Concomitant]
     Active Substance: ASPIRIN
  4. OMEPRAZOLE. [Concomitant]
     Active Substance: OMEPRAZOLE
  5. TUMS [Concomitant]
     Active Substance: CALCIUM CARBONATE
  6. OPANA [Concomitant]
     Active Substance: OXYMORPHONE HYDROCHLORIDE
  7. MULTI-VITAMIN ONE A DAY [Concomitant]
  8. CYMBALTA [Suspect]
     Active Substance: DULOXETINE HYDROCHLORIDE
     Indication: BACK INJURY
     Route: 048
     Dates: start: 201301, end: 20141120
  9. PROBIOTIC [Concomitant]
     Active Substance: PROBIOTICS NOS

REACTIONS (16)
  - Tremor [None]
  - Nightmare [None]
  - Weight abnormal [None]
  - Drug withdrawal syndrome [None]
  - Nausea [None]
  - Influenza like illness [None]
  - Insomnia [None]
  - Vomiting [None]
  - Pharyngeal disorder [None]
  - Hallucination [None]
  - Back pain [None]
  - Visual impairment [None]
  - Skin discolouration [None]
  - Delusion [None]
  - Dizziness [None]
  - Paraesthesia [None]

NARRATIVE: CASE EVENT DATE: 20141128
